FAERS Safety Report 11997458 (Version 1)
Quarter: 2016Q1

REPORT INFORMATION
  Report Type: Report from Study
  Country: JP (occurrence: JP)
  Receive Date: 20160203
  Receipt Date: 20160203
  Transmission Date: 20160526
  Serious: Yes (Other)
  Sender: FDA-Public Use
  Company Number: JP-AMGEN-JPNCT2014054221

PATIENT
  Age: 48 Year
  Sex: Male
  Weight: 62 kg

DRUGS (11)
  1. MEIACT [Concomitant]
     Active Substance: CEFDITOREN PIVOXIL
     Indication: DERMAL CYST
     Dosage: 100 MG, TID
     Route: 048
     Dates: start: 20111203, end: 20111209
  2. MARZULENE-S [Concomitant]
     Active Substance: SODIUM GUALENATE
     Indication: GASTRITIS
     Dosage: UNK
     Route: 048
  3. PREDONINE [Suspect]
     Active Substance: PREDNISOLONE\PREDNISOLONE ACETATE\PREDNISOLONE SODIUM SUCCINATE
     Indication: IMMUNE THROMBOCYTOPENIC PURPURA
     Dosage: 10 MG, UNK
     Route: 048
     Dates: start: 20110416
  4. TAKEPRON [Concomitant]
     Active Substance: LANSOPRAZOLE
     Indication: GASTRITIS
     Dosage: UNK
     Route: 048
  5. ROCALTROL [Concomitant]
     Active Substance: CALCITRIOL
     Indication: PROPHYLAXIS
     Dosage: UNK
     Route: 048
  6. ROMIPLOSTIM [Suspect]
     Active Substance: ROMIPLOSTIM
     Indication: IMMUNE THROMBOCYTOPENIC PURPURA
     Dosage: 10 MUG/KG, QWK
     Route: 058
     Dates: start: 20110416
  7. CINAL [Concomitant]
     Active Substance: ASCORBIC ACID\CALCIUM PANTOTHENATE
     Indication: IMMUNE THROMBOCYTOPENIC PURPURA
     Dosage: 2000 MG, UNK
     Route: 048
     Dates: start: 20110416
  8. ADONA                              /00056903/ [Concomitant]
     Active Substance: CARBAZOCHROME SODIUM SULFONATE
     Indication: IMMUNE THROMBOCYTOPENIC PURPURA
     Dosage: 90 MG, UNK
     Route: 048
     Dates: start: 20110416
  9. HERBESSER [Concomitant]
     Active Substance: DILTIAZEM HYDROCHLORIDE
     Indication: TACHYCARDIA
     Dosage: UNK
     Route: 048
  10. PARIET [Concomitant]
     Active Substance: RABEPRAZOLE SODIUM
     Indication: GASTRITIS
     Dosage: UNK
     Route: 048
  11. BARAMYCIN                          /00037701/ [Concomitant]
     Indication: DERMAL CYST
     Dosage: UNK
     Route: 061
     Dates: start: 20111206, end: 20111224

REACTIONS (5)
  - Gastroenteritis viral [Recovered/Resolved]
  - Retinal haemorrhage [Recovering/Resolving]
  - Dermal cyst [Recovered/Resolved]
  - White blood cell count increased [Not Recovered/Not Resolved]
  - Cataract [Not Recovered/Not Resolved]

NARRATIVE: CASE EVENT DATE: 20110507
